FAERS Safety Report 6393717-3 (Version None)
Quarter: 2009Q4

REPORT INFORMATION
  Report Type: 
  Country: None (occurrence: None)
  Receive Date: 20091008
  Receipt Date: 20091005
  Transmission Date: 20100525
  Serious: Yes (Death)
  Sender: FDA-Public Use
  Company Number: BR-ABBOTT-09P-020-0600932-00

PATIENT
  Sex: Female
  Weight: 45 kg

DRUGS (1)
  1. HUMIRA [Suspect]
     Indication: RHEUMATOID ARTHRITIS
     Route: 058
     Dates: start: 20070101, end: 20090401

REACTIONS (7)
  - ANAEMIA [None]
  - ASTHENIA [None]
  - DRUG INEFFECTIVE [None]
  - DYSPNOEA [None]
  - HEPATIC FAILURE [None]
  - HYPOPHAGIA [None]
  - RENAL FAILURE [None]
